FAERS Safety Report 7213880-1 (Version None)
Quarter: 2011Q1

REPORT INFORMATION
  Report Type: 
  Country: None (occurrence: None)
  Receive Date: 20110106
  Receipt Date: 20101230
  Transmission Date: 20110831
  Serious: Yes (Hospitalization, Other)
  Sender: FDA-Public Use
  Company Number: BE-ABBOTT-10P-013-0678567-00

PATIENT
  Sex: Female
  Weight: 92 kg

DRUGS (6)
  1. PYRIDOXINE HCL [Concomitant]
     Indication: PRODUCT USED FOR UNKNOWN INDICATION
  2. EMCORETIC [Concomitant]
     Indication: HYPERTENSION
     Dates: start: 20050101
  3. NICOTIBINE [Concomitant]
     Indication: ANTIBIOTIC PROPHYLAXIS
  4. EMCORETIC [Concomitant]
     Indication: CARDIAC DISORDER
  5. INDAPAMIDE [Concomitant]
     Indication: PRODUCT USED FOR UNKNOWN INDICATION
  6. HUMIRA [Suspect]
     Indication: RHEUMATOID ARTHRITIS
     Dates: start: 20100805

REACTIONS (5)
  - ARTERIOSCLEROSIS [None]
  - DYSPNOEA [None]
  - FATIGUE [None]
  - HEART RATE DECREASED [None]
  - MYOCARDIAL ISCHAEMIA [None]
